FAERS Safety Report 9225979 (Version 1)
Quarter: 2013Q2

REPORT INFORMATION
  Report Type: Spontaneous
  Country: FR (occurrence: FR)
  Receive Date: 20130411
  Receipt Date: 20130411
  Transmission Date: 20140414
  Serious: Yes (Other)
  Sender: FDA-Public Use
  Company Number: FR-ASTRAZENECA-2013SE21715

PATIENT
  Sex: Male

DRUGS (3)
  1. XEROQUEL [Suspect]
     Route: 048
     Dates: start: 20121010
  2. XEROQUEL [Suspect]
     Route: 048
  3. PARKINANE [Concomitant]
     Route: 048

REACTIONS (3)
  - Glycosylated haemoglobin increased [Not Recovered/Not Resolved]
  - Gait disturbance [Unknown]
  - Hyperglycaemia [Not Recovered/Not Resolved]
